FAERS Safety Report 7973420-6 (Version None)
Quarter: 2011Q4

REPORT INFORMATION
  Report Type: 
  Country: None (occurrence: None)
  Receive Date: 20111213
  Receipt Date: 20111201
  Transmission Date: 20120403
  Serious: Yes (Hospitalization, Other)
  Sender: FDA-Public Use
  Company Number: US-ELI_LILLY_AND_COMPANY-US201108001713

PATIENT
  Sex: Female

DRUGS (15)
  1. LIPITOR [Concomitant]
     Dosage: 80 MG, UNK
  2. NORVASC [Concomitant]
  3. PLAVIX [Concomitant]
     Dosage: 75 MG, UNK
  4. ATENOLOL [Concomitant]
  5. FORTEO [Suspect]
     Indication: OSTEOPOROSIS
     Dosage: 20 UG, QD
     Route: 065
     Dates: start: 20110101
  6. ASPIRIN [Concomitant]
     Dosage: 325 MG, UNK
  7. BUSPAR [Concomitant]
  8. SYNTHROID [Concomitant]
  9. WELLBUTRIN [Concomitant]
  10. ZOLOFT [Concomitant]
  11. CELEBREX [Concomitant]
     Dosage: 200 MG, UNK
  12. LORTAB [Concomitant]
     Indication: PAIN
     Dosage: UNK, PRN
  13. FORTEO [Suspect]
     Dosage: 20 UG, QD
     Dates: end: 20111017
  14. NEURONTIN [Concomitant]
  15. PRILOSEC [Concomitant]

REACTIONS (8)
  - LIMB INJURY [None]
  - ANAEMIA [None]
  - FALL [None]
  - ERYTHEMA [None]
  - DYSPNOEA [None]
  - CONSTIPATION [None]
  - ASTHMA [None]
  - BLISTER [None]
